FAERS Safety Report 9350278 (Version 8)
Quarter: 2014Q3

REPORT INFORMATION
  Report Type: Report from Study
  Country: CA (occurrence: CA)
  Receive Date: 20130617
  Receipt Date: 20140812
  Transmission Date: 20150326
  Serious: Yes (Hospitalization, Other)
  Sender: FDA-Public Use
  Company Number: CA-ROCHE-1180620

PATIENT
  Age: 69 Year
  Sex: Female
  Weight: 60 kg

DRUGS (20)
  1. ACTEMRA [Suspect]
     Active Substance: TOCILIZUMAB
     Indication: RHEUMATOID ARTHRITIS
     Route: 042
     Dates: start: 20120524
  2. ACTEMRA [Suspect]
     Active Substance: TOCILIZUMAB
     Route: 042
     Dates: start: 20130604
  3. OXYBUTYNIN [Concomitant]
     Active Substance: OXYBUTYNIN
  4. APO-FOLIC [Concomitant]
  5. METFORMIN [Concomitant]
     Active Substance: METFORMIN HYDROCHLORIDE
  6. ACTEMRA [Suspect]
     Active Substance: TOCILIZUMAB
     Route: 042
     Dates: start: 20120918
  7. ACTEMRA [Suspect]
     Active Substance: TOCILIZUMAB
     Route: 042
     Dates: start: 20130509
  8. ACTEMRA [Suspect]
     Active Substance: TOCILIZUMAB
     Route: 042
     Dates: start: 20130731, end: 20140722
  9. ASPIRIN. [Concomitant]
     Active Substance: ASPIRIN
  10. METHOTREXATE [Concomitant]
     Active Substance: METHOTREXATE
  11. NEXIUM [Concomitant]
     Active Substance: ESOMEPRAZOLE MAGNESIUM
  12. ACTEMRA [Suspect]
     Active Substance: TOCILIZUMAB
     Route: 042
     Dates: start: 20120716
  13. ACTEMRA [Suspect]
     Active Substance: TOCILIZUMAB
     Route: 042
     Dates: start: 20130123
  14. ATORVASTATIN [Concomitant]
     Active Substance: ATORVASTATIN
     Indication: BLOOD CHOLESTEROL
  15. ALENDRONATE [Concomitant]
     Active Substance: ALENDRONATE SODIUM
  16. AVALIDE [Concomitant]
     Active Substance: HYDROCHLOROTHIAZIDE\IRBESARTAN
  17. CORTISONE [Concomitant]
     Active Substance: CORTISONE\HYDROCORTISONE
  18. ACTEMRA [Suspect]
     Active Substance: TOCILIZUMAB
     Route: 042
     Dates: start: 20121219
  19. GABAPENTIN. [Concomitant]
     Active Substance: GABAPENTIN
  20. ACTEMRA [Suspect]
     Active Substance: TOCILIZUMAB
     Route: 042
     Dates: start: 20120618

REACTIONS (10)
  - Sinusitis [Unknown]
  - Chest pain [Recovered/Resolved]
  - Fibromyalgia [Not Recovered/Not Resolved]
  - Fatigue [Not Recovered/Not Resolved]
  - Gastric disorder [Unknown]
  - Bilirubin conjugated increased [Recovering/Resolving]
  - Headache [Not Recovered/Not Resolved]
  - Nasopharyngitis [Unknown]
  - Infusion related reaction [Unknown]
  - Arthralgia [Not Recovered/Not Resolved]

NARRATIVE: CASE EVENT DATE: 201212
